FAERS Safety Report 4392920-1 (Version None)
Quarter: 2004Q3

REPORT INFORMATION
  Report Type: 
  Country: None (occurrence: None)
  Receive Date: 20040702
  Receipt Date: 20040618
  Transmission Date: 20050211
  Serious: Yes (Hospitalization, Other)
  Sender: FDA-Public Use
  Company Number: THYR-10159

PATIENT
  Age: 78 Year
  Sex: Male
  Weight: 90 kg

DRUGS (6)
  1. THYROGEN [Suspect]
     Indication: DIAGNOSTIC PROCEDURE
     Dosage: 0.9 MG QD IM
     Route: 030
     Dates: start: 20040216, end: 20040217
  2. CORTANCYL [Suspect]
     Indication: NEPHROTIC SYNDROME
     Dosage: 80 MG NA
     Dates: start: 20040527
  3. ENANTONE [Concomitant]
  4. CASODEX [Concomitant]
  5. ALDALIX [Concomitant]
  6. LEVOTHYROXINE SODIUM [Concomitant]

REACTIONS (6)
  - BLOOD GLUCOSE INCREASED [None]
  - DEPRESSION [None]
  - HYPOMANIA [None]
  - NEPHROTIC SYNDROME [None]
  - PARANEOPLASTIC SYNDROME [None]
  - WEIGHT INCREASED [None]
